FAERS Safety Report 5916439-9 (Version None)
Quarter: 2008Q4

REPORT INFORMATION
  Report Type: 
  Country: None (occurrence: None)
  Receive Date: 20081013
  Receipt Date: 20081007
  Transmission Date: 20090506
  Serious: Yes (Hospitalization, Other)
  Sender: FDA-Public Use
  Company Number: US-BAYER-200830098NA

PATIENT
  Age: 54 Year
  Sex: Male

DRUGS (6)
  1. CAMPATH [Suspect]
     Indication: CHRONIC LYMPHOCYTIC LEUKAEMIA
     Dosage: TOTAL DAILY DOSE: 15 MG
     Route: 042
     Dates: start: 20080430, end: 20080505
  2. CAMPATH [Suspect]
     Dosage: TOTAL DAILY DOSE: 30 MG
     Route: 042
     Dates: start: 20080407, end: 20080401
  3. BACTRIM [Concomitant]
     Indication: INFECTION PROPHYLAXIS
     Dates: start: 20080401
  4. FAMVIR [Concomitant]
     Indication: INFECTION PROPHYLAXIS
     Dates: start: 20080401
  5. BENADRYL [Concomitant]
     Indication: PREMEDICATION
  6. TYLENOL (CAPLET) [Concomitant]
     Indication: PREMEDICATION

REACTIONS (9)
  - ABDOMINAL DISTENSION [None]
  - ASCITES [None]
  - CYTOMEGALOVIRUS TEST POSITIVE [None]
  - HEPATIC ENZYME INCREASED [None]
  - JAUNDICE [None]
  - NAUSEA [None]
  - PYREXIA [None]
  - URTICARIA [None]
  - VOMITING [None]
